FAERS Safety Report 12828845 (Version 1)
Quarter: 2016Q4

REPORT INFORMATION
  Report Type: Spontaneous
  Country: US (occurrence: US)
  Receive Date: 20161007
  Receipt Date: 20161007
  Transmission Date: 20170207
  Serious: No
  Sender: FDA-Public Use
  Company Number: US-SA-2015SA166984

PATIENT
  Age: 53 Year
  Sex: Female

DRUGS (7)
  1. CITALOPRAM HYDROCHLORIDE [Concomitant]
     Active Substance: CITALOPRAM HYDROCHLORIDE
  2. AUBAGIO [Suspect]
     Active Substance: TERIFLUNOMIDE
     Indication: MULTIPLE SCLEROSIS
     Route: 048
  3. ATORVASTATIN CALCIUM. [Concomitant]
     Active Substance: ATORVASTATIN CALCIUM
  4. CALCIUM D3 [Concomitant]
     Active Substance: CALCIUM\CHOLECALCIFEROL
     Dosage: CALCIUM/D3
  5. LUMIGAN [Concomitant]
     Active Substance: BIMATOPROST
  6. ASPIRIN. [Concomitant]
     Active Substance: ASPIRIN
  7. ZYRTEC [Concomitant]
     Active Substance: CETIRIZINE HYDROCHLORIDE

REACTIONS (3)
  - Fatigue [Unknown]
  - Depression [Not Recovered/Not Resolved]
  - Anhedonia [Recovering/Resolving]
